FAERS Safety Report 21787663 (Version 2)
Quarter: 2023Q1

REPORT INFORMATION
  Report Type: Spontaneous
  Country: GB (occurrence: GB)
  Receive Date: 20221228
  Receipt Date: 20230103
  Transmission Date: 20230417
  Serious: Yes (Hospitalization, Other)
  Sender: FDA-Public Use
  Company Number: GB-MYLANLABS-2022M1146546

PATIENT
  Age: 54 Year
  Sex: Male
  Weight: 60.3 kg

DRUGS (6)
  1. CLOZARIL [Suspect]
     Active Substance: CLOZAPINE
     Indication: Schizophrenia
     Dosage: 700 MILLIGRAM (400MG OM + 300MGS ON)
     Route: 048
     Dates: start: 20010701, end: 20221120
  2. LANSOPRAZOLE [Concomitant]
     Active Substance: LANSOPRAZOLE
     Dosage: 30 MILLIGRAM, QD
     Route: 048
  3. GLYCERIN [Concomitant]
     Active Substance: GLYCERIN
     Dosage: 4 GRAM, QD
     Route: 065
  4. LEVOTHYROXINE [Concomitant]
     Active Substance: LEVOTHYROXINE
     Dosage: 75 MICROGRAM, QD
     Route: 048
  5. Picolax [Concomitant]
     Dosage: 1 DOSAGE FORM, QD (SACHET, ORAL POWDER)
     Route: 048
  6. VALPROATE SODIUM [Concomitant]
     Active Substance: VALPROATE SODIUM
     Dosage: 800 MILLIGRAM, (300MG OM +500MG ON)
     Route: 048

REACTIONS (6)
  - Hospitalisation [Unknown]
  - Seizure [Recovered/Resolved]
  - Constipation [Recovering/Resolving]
  - Faecaloma [Unknown]
  - Gastrointestinal wall thickening [Unknown]
  - Intestinal atony [Unknown]

NARRATIVE: CASE EVENT DATE: 20221116
